FAERS Safety Report 14970383 (Version 1)
Quarter: 2018Q2

REPORT INFORMATION
  Report Type: Spontaneous
  Country: US (occurrence: US)
  Receive Date: 20180604
  Receipt Date: 20180604
  Transmission Date: 20180711
  Serious: No
  Sender: FDA-Public Use
  Company Number: US-ALLERGAN-1806577US

PATIENT
  Age: 57 Year
  Sex: Female

DRUGS (1)
  1. KYBELLA [Suspect]
     Active Substance: DEOXYCHOLIC ACID
     Indication: FAT TISSUE INCREASED
     Dosage: 2 VIALS (4 ML), SINGLE
     Route: 058
     Dates: start: 20180129, end: 20180129

REACTIONS (2)
  - Injection site necrosis [Recovering/Resolving]
  - Paraesthesia oral [Unknown]
